FAERS Safety Report 14128846 (Version 2)
Quarter: 2017Q4

REPORT INFORMATION
  Report Type: Report from Study
  Country: None (occurrence: BR)
  Receive Date: 20171026
  Receipt Date: 20171103
  Transmission Date: 20180321
  Serious: Yes (Death, Hospitalization, Other)
  Sender: FDA-Public Use
  Company Number: BR-ABBVIE-17P-020-2142787-00

PATIENT
  Age: 54 Year
  Sex: Male
  Weight: 89 kg

DRUGS (3)
  1. ALLOPURINOL. [Concomitant]
     Active Substance: ALLOPURINOL
     Indication: TUMOUR LYSIS SYNDROME
     Route: 048
     Dates: start: 20170830, end: 20171008
  2. VENETOCLAX. [Suspect]
     Active Substance: VENETOCLAX
     Indication: CHRONIC LYMPHOCYTIC LEUKAEMIA
     Route: 048
     Dates: start: 20170830, end: 20171015
  3. ALLOPURINOL. [Concomitant]
     Active Substance: ALLOPURINOL
     Indication: PROPHYLAXIS

REACTIONS (11)
  - Pneumonia [Fatal]
  - Oliguria [Unknown]
  - Lung infiltration [Unknown]
  - Oxygen saturation decreased [Unknown]
  - Hypotension [Unknown]
  - Multiple organ dysfunction syndrome [Unknown]
  - Sepsis [Fatal]
  - Pyrexia [Not Recovered/Not Resolved]
  - Respiration abnormal [Unknown]
  - Respiratory failure [Unknown]
  - Cough [Not Recovered/Not Resolved]

NARRATIVE: CASE EVENT DATE: 20171008
